FAERS Safety Report 14927004 (Version 1)
Quarter: 2018Q2

REPORT INFORMATION
  Report Type: Spontaneous
  Country: CN (occurrence: CN)
  Receive Date: 20180523
  Receipt Date: 20180523
  Transmission Date: 20180711
  Serious: Yes (Other)
  Sender: FDA-Public Use
  Company Number: CN-ROCHE-2124309

PATIENT
  Sex: Male

DRUGS (2)
  1. OXALIPLATIN. [Suspect]
     Active Substance: OXALIPLATIN
     Indication: PRODUCT USED FOR UNKNOWN INDICATION
     Route: 065
  2. XELODA [Suspect]
     Active Substance: CAPECITABINE
     Indication: PRODUCT USED FOR UNKNOWN INDICATION
     Dosage: 2 TABLET PER TIME
     Route: 065

REACTIONS (6)
  - Erosive oesophagitis [Unknown]
  - Vomiting [Unknown]
  - Oral disorder [Unknown]
  - Salivary hypersecretion [Unknown]
  - Oesophageal haemorrhage [Unknown]
  - Nausea [Unknown]
